FAERS Safety Report 9370046 (Version 2)
Quarter: 2013Q3

REPORT INFORMATION
  Report Type: Spontaneous
  Country: US (occurrence: US)
  Receive Date: 20130626
  Receipt Date: 20130718
  Transmission Date: 20140515
  Serious: Yes (Death, Hospitalization)
  Sender: FDA-Public Use
  Company Number: US-GILEAD-2013-0077674

PATIENT
  Age: 69 Year
  Sex: Male

DRUGS (2)
  1. LETAIRIS [Suspect]
     Indication: PULMONARY ARTERIAL HYPERTENSION
     Dosage: 10 MG, QD
     Route: 048
     Dates: start: 20130517, end: 20130701
  2. LACTULOSE [Concomitant]

REACTIONS (5)
  - Death [Fatal]
  - Chronic hepatic failure [Not Recovered/Not Resolved]
  - Confusional state [Not Recovered/Not Resolved]
  - Ascites [Not Recovered/Not Resolved]
  - Ammonia increased [Unknown]
